FAERS Safety Report 10866594 (Version 1)
Quarter: 2015Q1

REPORT INFORMATION
  Report Type: Spontaneous
  Country: US (occurrence: None)
  Receive Date: 20150220
  Receipt Date: 20150220
  Transmission Date: 20150721
  Serious: No
  Sender: FDA-Public Use
  Company Number: None

PATIENT
  Age: 70 Year
  Sex: Female

DRUGS (2)
  1. BENZONATATE. [Suspect]
     Active Substance: BENZONATATE
     Indication: COUGH
     Dosage: 2 CAPSULES
  2. BENZONATATE. [Suspect]
     Active Substance: BENZONATATE
     Indication: BRONCHITIS
     Dosage: 2 CAPSULES

REACTIONS (4)
  - Asthenia [None]
  - Dizziness [None]
  - Mood altered [None]
  - Chest discomfort [None]

NARRATIVE: CASE EVENT DATE: 20150130
